FAERS Safety Report 16622668 (Version 1)
Quarter: 2019Q3

REPORT INFORMATION
  Report Type: Spontaneous
  Country: US (occurrence: US)
  Receive Date: 20190723
  Receipt Date: 20190723
  Transmission Date: 20191004
  Serious: No
  Sender: FDA-Public Use
  Company Number: US-OTSUKA-2019_011926

PATIENT
  Age: 44 Year
  Sex: Female

DRUGS (3)
  1. PROZAC [Concomitant]
     Active Substance: FLUOXETINE HYDROCHLORIDE
     Indication: PRODUCT USED FOR UNKNOWN INDICATION
     Dosage: 20 MG, UNK
     Route: 065
  2. REXULTI [Suspect]
     Active Substance: BREXPIPRAZOLE
     Indication: PSYCHOTIC DISORDER
  3. REXULTI [Suspect]
     Active Substance: BREXPIPRAZOLE
     Indication: AFFECTIVE DISORDER
     Dosage: 0.5 MG, QD
     Route: 065
     Dates: start: 20190322, end: 2019

REACTIONS (3)
  - Agitation [Unknown]
  - Akathisia [Unknown]
  - Product use in unapproved indication [Unknown]

NARRATIVE: CASE EVENT DATE: 20190322
